FAERS Safety Report 8528463 (Version 2)
Quarter: 2013Q3

REPORT INFORMATION
  Report Type: Spontaneous
  Country: US (occurrence: US)
  Receive Date: 20120424
  Receipt Date: 20130905
  Transmission Date: 20140515
  Serious: No
  Sender: FDA-Public Use
  Company Number: US-B.I. PHARMACEUTICALS,INC./RIDGEFIELD-2012-BP-03609BP

PATIENT
  Age: 70 Year
  Sex: Female

DRUGS (6)
  1. PRADAXA [Suspect]
     Indication: ATRIAL FIBRILLATION
     Dosage: 300 MG
     Route: 048
     Dates: start: 201101
  2. PRADAXA [Suspect]
     Indication: CEREBROVASCULAR ACCIDENT PROPHYLAXIS
  3. CARDIZEM [Concomitant]
  4. BENICAR [Concomitant]
     Dates: start: 201106
  5. CRESTOR [Concomitant]
  6. METOPROLOL [Concomitant]
     Dates: start: 201106

REACTIONS (6)
  - Musculoskeletal pain [Recovered/Resolved]
  - Cholelithiasis [Recovered/Resolved]
  - Vocal cord disorder [Not Recovered/Not Resolved]
  - Dysphonia [Not Recovered/Not Resolved]
  - Joint swelling [Not Recovered/Not Resolved]
  - Cataract [Not Recovered/Not Resolved]
